FAERS Safety Report 10566388 (Version 1)
Quarter: 2014Q4

REPORT INFORMATION
  Report Type: Spontaneous
  Country: FR (occurrence: FR)
  Receive Date: 20141105
  Receipt Date: 20141105
  Transmission Date: 20150529
  Serious: Yes (Life-Threatening, Hospitalization)
  Sender: FDA-Public Use
  Company Number: FR-TEVA-519721ISR

PATIENT
  Age: 62 Year
  Sex: Male

DRUGS (6)
  1. CRESTOR [Concomitant]
     Active Substance: ROSUVASTATIN CALCIUM
     Dosage: USUAL TREATMENT
  2. RAMIPRIL TEVA 5 MG [Suspect]
     Active Substance: RAMIPRIL
     Dosage: USUAL TREATMENT. THE PATIENT WAS ALREADY TAKING THIS PRODUCT IN FEBRUARY 2014.
     Route: 048
     Dates: end: 201409
  3. GLICLAZIDE [Concomitant]
     Active Substance: GLICLAZIDE
     Dosage: USUAL TREATMENT
  4. ANGIOTENSIN CONVERTING ENZYME INHIBITOR [Concomitant]
     Dosage: USUAL TREATMENT, FOR MORE THAN FIVE YEARS
  5. KARDEGIC [Concomitant]
     Active Substance: ASPIRIN LYSINE
     Dosage: USUAL TREATMENT
  6. EUCREAS [Suspect]
     Active Substance: METFORMIN HYDROCHLORIDE\VILDAGLIPTIN
     Dosage: USUAL TREATMENT
     Route: 048
     Dates: end: 201409

REACTIONS (3)
  - Angioedema [Recovered/Resolved]
  - Macroglossia [Recovered/Resolved]
  - Respiratory distress [Recovered/Resolved]

NARRATIVE: CASE EVENT DATE: 20140912
